FAERS Safety Report 7121139-6 (Version None)
Quarter: 2010Q4

REPORT INFORMATION
  Report Type: 
  Country: None (occurrence: None)
  Receive Date: 20101124
  Receipt Date: 20101116
  Transmission Date: 20110411
  Serious: Yes (Death, Life-Threatening)
  Sender: FDA-Public Use
  Company Number: US-NAPPMUNDI-USA-2010-0054290

PATIENT
  Age: 50 Year
  Sex: Male

DRUGS (2)
  1. DILAUDID-HP [Suspect]
     Indication: PAIN
     Dosage: 4 MG, UNK
  2. PHENERGAN HCL [Suspect]
     Indication: PAIN
     Dosage: 12.5 MG, UNK

REACTIONS (4)
  - BRAIN DEATH [None]
  - HYPOXIA [None]
  - PULSE ABSENT [None]
  - RESPIRATORY ARREST [None]
